FAERS Safety Report 7482936-0 (Version None)
Quarter: 2011Q2

REPORT INFORMATION
  Report Type: 
  Country: None (occurrence: None)
  Receive Date: 20110516
  Receipt Date: 20110504
  Transmission Date: 20111010
  Serious: Yes (Hospitalization)
  Sender: FDA-Public Use
  Company Number: US-BAUSCH-2011BL002943

PATIENT
  Age: 2 Day
  Sex: Male

DRUGS (1)
  1. GENTAMICIN [Suspect]
     Indication: PROPHYLAXIS
     Route: 047
     Dates: start: 20091001, end: 20091001

REACTIONS (4)
  - EYELID OEDEMA [None]
  - ERYTHEMA OF EYELID [None]
  - BLISTER [None]
  - EYE DISCHARGE [None]
